FAERS Safety Report 26098228 (Version 3)
Quarter: 2025Q4

REPORT INFORMATION
  Report Type: Spontaneous
  Country: US (occurrence: US)
  Receive Date: 20251127
  Receipt Date: 20251212
  Transmission Date: 20260118
  Serious: Yes (Hospitalization, Other)
  Sender: BOEHRINGER INGELHEIM
  Company Number: US-BoehringerIngelheim-2025-BI-109537

PATIENT
  Age: 64 Year
  Sex: Female

DRUGS (8)
  1. PRAMIPEXOLE [Suspect]
     Active Substance: PRAMIPEXOLE
     Indication: Restless legs syndrome
     Dates: start: 201906
  2. PRAMIPEXOLE [Suspect]
     Active Substance: PRAMIPEXOLE
     Dates: start: 201912
  3. PRAMIPEXOLE [Suspect]
     Active Substance: PRAMIPEXOLE
     Dates: start: 202409
  4. BUPROPION [Concomitant]
     Active Substance: BUPROPION
     Indication: Product used for unknown indication
  5. BUSPIRONE [Concomitant]
     Active Substance: BUSPIRONE HYDROCHLORIDE
     Indication: Product used for unknown indication
  6. GABAPENTIN [Concomitant]
     Active Substance: GABAPENTIN
     Indication: Product used for unknown indication
  7. TOPIRAMATE [Concomitant]
     Active Substance: TOPIRAMATE
     Indication: Product used for unknown indication
  8. VENLAFAXINE [Concomitant]
     Active Substance: VENLAFAXINE HYDROCHLORIDE
     Indication: Product used for unknown indication

REACTIONS (8)
  - Depressed mood [Recovered/Resolved]
  - Suicidal ideation [Recovered/Resolved]
  - Neurodermatitis [Recovered/Resolved]
  - Skin abrasion [Recovered/Resolved]
  - Obsessive-compulsive disorder [Recovered/Resolved]
  - Intentional overdose [Recovered/Resolved]
  - Hallucination, tactile [Recovered/Resolved]
  - Iron deficiency anaemia [Recovered/Resolved]
